FAERS Safety Report 23922045 (Version 1)
Quarter: 2024Q2

REPORT INFORMATION
  Report Type: Report from Study
  Country: US (occurrence: US)
  Receive Date: 20240531
  Receipt Date: 20240531
  Transmission Date: 20240716
  Serious: Yes (Hospitalization, Other)
  Sender: FDA-Public Use
  Company Number: US-ABBVIE-5780412

PATIENT
  Age: 58 Year
  Sex: Female

DRUGS (1)
  1. SKYRIZI [Suspect]
     Active Substance: RISANKIZUMAB-RZAA
     Indication: Crohn^s disease
     Route: 041
     Dates: start: 20240426

REACTIONS (5)
  - Pulmonary embolism [Recovering/Resolving]
  - Abdominal pain [Recovering/Resolving]
  - Feeding disorder [Recovering/Resolving]
  - Dyspnoea [Recovering/Resolving]
  - Vital functions abnormal [Recovering/Resolving]

NARRATIVE: CASE EVENT DATE: 20240509
